FAERS Safety Report 16279283 (Version 1)
Quarter: 2019Q2

REPORT INFORMATION
  Report Type: Other
  Country: DE (occurrence: DE)
  Receive Date: 20190506
  Receipt Date: 20190506
  Transmission Date: 20190711
  Serious: Yes (Life-Threatening, Hospitalization)
  Sender: FDA-Public Use
  Company Number: DE-CELLTRION INC.-2019DE017783

PATIENT

DRUGS (6)
  1. RITUXIMAB (UNKNOWN) [Suspect]
     Active Substance: RITUXIMAB
     Indication: RHEUMATOID ARTHRITIS
     Dosage: 1000 MG
     Route: 065
     Dates: start: 20171114
  2. RAMIPRIL. [Concomitant]
     Active Substance: RAMIPRIL
     Indication: HYPERTENSION
     Dosage: 5 MG
     Route: 042
  3. ALENDRONAT [Concomitant]
     Active Substance: ALENDRONATE SODIUM
  4. PREDNISOLON [Concomitant]
     Active Substance: PREDNISOLONE
  5. AMLODIPIN [Concomitant]
     Active Substance: AMLODIPINE BESYLATE
     Indication: HYPERTENSION
     Dosage: 5 MG
     Route: 065
  6. RITUXIMAB (UNKNOWN) [Suspect]
     Active Substance: RITUXIMAB
     Dosage: 1000 MG
     Route: 065
     Dates: start: 20181213

REACTIONS (4)
  - Spinal osteoarthritis [Unknown]
  - Rheumatoid lung [Unknown]
  - Coronary artery disease [Recovered/Resolved]
  - Acute myocardial infarction [Recovered/Resolved]

NARRATIVE: CASE EVENT DATE: 201807
